FAERS Safety Report 9808275 (Version 1)
Quarter: 2014Q1

REPORT INFORMATION
  Report Type: Spontaneous
  Country: US (occurrence: None)
  Receive Date: 20140108
  Receipt Date: 20140108
  Transmission Date: 20141002
  Serious: Yes (Hospitalization)
  Sender: FDA-Public Use
  Company Number: SYM-2014-14617

PATIENT
  Age: 67 Year
  Sex: Female

DRUGS (4)
  1. METRONIDAZOLE (METRONIDAZOLE) (METRONIDAZOLE) [Suspect]
     Indication: INFECTION
  2. VANCOMYCIN (VANCOMYCIN) (VANCOMYCIN) [Concomitant]
  3. CIPROFLOXACIN (CIPROFLOXACIN) (CIPROFLOXACIN) (CIPROFLOXACIN) [Concomitant]
  4. DOBUTAMINE (DOBUTAMINE) (DOBUTAMINE) [Concomitant]

REACTIONS (3)
  - Enterocolitis [None]
  - Staphylococcal infection [None]
  - Hepatic enzyme increased [None]
